FAERS Safety Report 10234652 (Version 10)
Quarter: 2014Q4

REPORT INFORMATION
  Report Type: Report from Study
  Country: ZA (occurrence: ZA)
  Receive Date: 20140613
  Receipt Date: 20141217
  Transmission Date: 20150528
  Serious: Yes (Hospitalization, Other)
  Sender: FDA-Public Use
  Company Number: ZA-BIOGENIDEC-2014BI030993

PATIENT
  Age: 45 Year
  Sex: Male
  Weight: 74 kg

DRUGS (8)
  1. RETIN-A [Concomitant]
     Active Substance: TRETINOIN
     Indication: PSORIASIS
     Route: 061
     Dates: start: 20130314
  2. PARACETAMOL [Concomitant]
     Active Substance: ACETAMINOPHEN
     Indication: HEADACHE
     Route: 048
     Dates: start: 20130318
  3. TRAMADOL [Concomitant]
     Active Substance: TRAMADOL
     Indication: PAIN
     Route: 048
     Dates: start: 20130318
  4. RFIXFC [Suspect]
     Active Substance: EFTRENONACOG ALFA
     Indication: FACTOR IX DEFICIENCY
     Route: 042
     Dates: start: 20121015
  5. TRAMADOL [Concomitant]
     Active Substance: TRAMADOL
     Indication: HEADACHE
     Route: 048
     Dates: start: 20130318
  6. PARACETAMOL [Concomitant]
     Active Substance: ACETAMINOPHEN
     Indication: PAIN
     Route: 048
     Dates: start: 20130318
  7. RFIXFC [Suspect]
     Active Substance: EFTRENONACOG ALFA
     Indication: FACTOR IX DEFICIENCY
     Route: 042
     Dates: start: 20120531, end: 20121004
  8. MAGNESIUM CHLORIDE. [Concomitant]
     Active Substance: MAGNESIUM CHLORIDE
     Indication: MUSCLE SPASMS
     Route: 048
     Dates: start: 20121119

REACTIONS (2)
  - Epididymitis [Recovered/Resolved]
  - Anal sphincter atony [Recovered/Resolved]

NARRATIVE: CASE EVENT DATE: 20140328
